FAERS Safety Report 23547951 (Version 2)
Quarter: 2024Q2

REPORT INFORMATION
  Report Type: Spontaneous
  Country: CA (occurrence: CA)
  Receive Date: 20240221
  Receipt Date: 20240622
  Transmission Date: 20240716
  Serious: Yes (Hospitalization, Other)
  Sender: FDA-Public Use
  Company Number: None

PATIENT
  Age: 36 Year
  Sex: Male
  Weight: 92 kg

DRUGS (17)
  1. CISPLATIN [Suspect]
     Active Substance: CISPLATIN
     Indication: Adenocarcinoma metastatic
     Dosage: SOLUTION INTRAVENOUS
     Route: 042
  2. CLONAZEPAM [Suspect]
     Active Substance: CLONAZEPAM
     Indication: Adenocarcinoma metastatic
  3. SODIUM CHLORIDE [Suspect]
     Active Substance: SODIUM CHLORIDE
     Indication: Adenocarcinoma metastatic
  4. VEPESID [Suspect]
     Active Substance: ETOPOSIDE
     Indication: Adenocarcinoma metastatic
  5. ALLOPURINOL [Concomitant]
     Active Substance: ALLOPURINOL
  6. DEXAMETHASONE [Concomitant]
     Active Substance: DEXAMETHASONE
  7. HYDROMORPHONE HCL [Concomitant]
     Active Substance: HYDROMORPHONE HYDROCHLORIDE
     Dosage: CAPSULE, SUSTAINEDRELEASE
  8. LORAZEPAM [Concomitant]
     Active Substance: LORAZEPAM
     Route: 065
  9. METOCLOPRAMIDE [Concomitant]
     Active Substance: METOCLOPRAMIDE
  10. ONDANSETRON [Concomitant]
     Active Substance: ONDANSETRON
  11. PANTOPRAZOLE [Concomitant]
     Active Substance: PANTOPRAZOLE
  12. RIVAROXABAN [Concomitant]
     Active Substance: RIVAROXABAN
     Route: 065
  13. SENNA [Concomitant]
     Active Substance: SENNA LEAF\SENNOSIDES\SENNOSIDES A AND B
  14. SODIUM PHOSPHATE [Concomitant]
     Active Substance: SODIUM PHOSPHATE
  15. TRAZODONE [Concomitant]
     Active Substance: TRAZODONE HYDROCHLORIDE
  16. VENLAFAXINE [Concomitant]
     Active Substance: VENLAFAXINE HYDROCHLORIDE
     Dosage: CAPSULE, EXTENDED RELEASE
  17. ZOPICLONE [Concomitant]
     Active Substance: ZOPICLONE

REACTIONS (3)
  - Generalised oedema [Recovered/Resolved]
  - Hepatic failure [Recovered/Resolved]
  - Oral candidiasis [Recovered/Resolved]
